FAERS Safety Report 5381618-9 (Version None)
Quarter: 2007Q2

REPORT INFORMATION
  Report Type: 
  Country: None (occurrence: None)
  Receive Date: 20070629
  Receipt Date: 20070518
  Transmission Date: 20071010
  Serious: Yes (Disabling)
  Sender: FDA-Public Use
  Company Number: A03200703217

PATIENT
  Age: 48 Year
  Sex: Male

DRUGS (5)
  1. AMBIEN [Suspect]
     Indication: INSOMNIA
     Dosage: 12.5 TO 25 MG/DAILY - ORAL
     Route: 048
     Dates: start: 20060411, end: 20070101
  2. ALPRAZOLAM [Concomitant]
  3. LORAZEPAM [Concomitant]
  4. QUETIAPINE FUMARATE [Concomitant]
  5. AMPHETAMINES [Concomitant]

REACTIONS (3)
  - AMNESIA [None]
  - ANXIETY [None]
  - PRESCRIBED OVERDOSE [None]
